FAERS Safety Report 8156903-8 (Version None)
Quarter: 2012Q1

REPORT INFORMATION
  Report Type: 
  Country: None (occurrence: None)
  Receive Date: 20120222
  Receipt Date: 20120217
  Transmission Date: 20120608
  Serious: Yes (Hospitalization)
  Sender: FDA-Public Use
  Company Number: HK-GLAXOSMITHKLINE-B0783190A

PATIENT

DRUGS (1)
  1. PAROXETINE HCL [Suspect]
     Indication: ANXIETY
     Route: 065
     Dates: start: 20100601, end: 20100605

REACTIONS (2)
  - PARKINSONISM [None]
  - APHASIA [None]
